FAERS Safety Report 5719894-2 (Version None)
Quarter: 2008Q2

REPORT INFORMATION
  Report Type: 
  Country: None (occurrence: None)
  Receive Date: 20080428
  Receipt Date: 20071101
  Transmission Date: 20081010
  Serious: No
  Sender: FDA-Public Use
  Company Number: A0691028A

PATIENT
  Age: 41 Year
  Sex: Female

DRUGS (3)
  1. ZOFRAN [Suspect]
     Indication: NAUSEA
     Dosage: 4MG AS REQUIRED
     Route: 048
     Dates: start: 20071001
  2. SYNTHROID [Concomitant]
  3. TOPAMAX [Concomitant]

REACTIONS (1)
  - RASH [None]
